FAERS Safety Report 11851960 (Version 1)
Quarter: 2015Q4

REPORT INFORMATION
  Report Type: Report from Study
  Country: AU (occurrence: AU)
  Receive Date: 20151218
  Receipt Date: 20151218
  Transmission Date: 20160305
  Serious: Yes (Hospitalization)
  Sender: FDA-Public Use
  Company Number: AU-SA-2015SA149800

PATIENT
  Age: 55 Year
  Sex: Male

DRUGS (1)
  1. LEMTRADA [Suspect]
     Active Substance: ALEMTUZUMAB
     Route: 041
     Dates: start: 20150907, end: 20150911

REACTIONS (9)
  - Rash [Recovered/Resolved]
  - Pneumonia viral [Recovered/Resolved]
  - Fatigue [Recovering/Resolving]
  - Oropharyngeal pain [Unknown]
  - Dyspnoea exertional [Unknown]
  - Productive cough [Unknown]
  - Myalgia [Unknown]
  - Loss of consciousness [Unknown]
  - Pyrexia [Unknown]

NARRATIVE: CASE EVENT DATE: 201509
